FAERS Safety Report 9330774 (Version 3)
Quarter: 2014Q2

REPORT INFORMATION
  Report Type: Spontaneous
  Country: US (occurrence: US)
  Receive Date: 20130605
  Receipt Date: 20140611
  Transmission Date: 20141212
  Serious: Yes (Disabling, Other)
  Sender: FDA-Public Use
  Company Number: US-JNJFOC-20130601103

PATIENT
  Age: 43 Year
  Sex: Female

DRUGS (1)
  1. MONONESSA [Suspect]
     Indication: ORAL CONTRACEPTION
     Route: 048
     Dates: start: 201201

REACTIONS (5)
  - Disability [Unknown]
  - Deep vein thrombosis [Unknown]
  - Cerebral venous thrombosis [Not Recovered/Not Resolved]
  - Hypertension [Unknown]
  - Headache [Unknown]
